FAERS Safety Report 8792722 (Version 2)
Quarter: 2012Q4

REPORT INFORMATION
  Report Type: 
  Country: US (occurrence: IT)
  Receive Date: 20120918
  Receipt Date: 20121206
  Transmission Date: 20130627
  Serious: Yes (Life-Threatening, Hospitalization, Other)
  Sender: FDA-Public Use
  Company Number: US-GLAXOSMITHKLINE-A0993688A

PATIENT
  Age: 47 Year
  Sex: Male
  Weight: 76.8 kg

DRUGS (1)
  1. BACTROBAN [Suspect]
     Indication: INFLAMMATION
     Route: 065

REACTIONS (16)
  - Angioedema [Recovered/Resolved]
  - Chest pain [Unknown]
  - Muscle tightness [Unknown]
  - Oedema mouth [Unknown]
  - Swollen tongue [Unknown]
  - Dysphagia [Unknown]
  - Oropharyngeal pain [Unknown]
  - Sialoadenitis [Unknown]
  - Inflammation [Unknown]
  - Aphagia [Unknown]
  - Insomnia [Unknown]
  - Ear pain [Unknown]
  - Pharyngeal oedema [Unknown]
  - Lymphadenopathy [Unknown]
  - Face oedema [Unknown]
  - Laryngeal oedema [Unknown]
